FAERS Safety Report 25320611 (Version 1)
Quarter: 2025Q2

REPORT INFORMATION
  Report Type: Spontaneous
  Country: GB (occurrence: GB)
  Receive Date: 20250515
  Receipt Date: 20250515
  Transmission Date: 20250717
  Serious: Yes (Life-Threatening, Hospitalization, Other)
  Sender: ELI LILLY AND COMPANY
  Company Number: None

PATIENT
  Age: 30 Year
  Sex: Female
  Weight: 54 kg

DRUGS (1)
  1. MOUNJARO [Suspect]
     Active Substance: TIRZEPATIDE
     Indication: Weight control
     Route: 065
     Dates: start: 202408

REACTIONS (5)
  - Dehydration [Recovering/Resolving]
  - Starvation ketoacidosis [Unknown]
  - Metabolic disorder [Unknown]
  - Pancreatitis [Unknown]
  - Amylase increased [Unknown]

NARRATIVE: CASE EVENT DATE: 20250505
